FAERS Safety Report 6012258-6 (Version None)
Quarter: 2008Q4

REPORT INFORMATION
  Report Type: 
  Country: None (occurrence: None)
  Receive Date: 20081216
  Receipt Date: 20080124
  Transmission Date: 20090506
  Serious: Yes (Other)
  Sender: FDA-Public Use
  Company Number: US-WYE-H02295608

PATIENT
  Age: 75 Year
  Sex: Female
  Weight: 68.1 kg

DRUGS (3)
  1. EFFEXOR XR [Suspect]
     Indication: DEPRESSION
     Dosage: 37.5 MG IN AM AND 150 MG IN PM, ORAL
     Route: 048
     Dates: start: 20070101
  2. HUMALOG [Concomitant]
  3. LANTUS [Concomitant]

REACTIONS (1)
  - URINARY RETENTION [None]
